FAERS Safety Report 24808660 (Version 1)
Quarter: 2025Q1

REPORT INFORMATION
  Report Type: Report from Study
  Country: IT (occurrence: IT)
  Receive Date: 20250106
  Receipt Date: 20250106
  Transmission Date: 20250409
  Serious: Yes (Death, Other)
  Sender: ROCHE
  Company Number: IT-ROCHE-10000170935

PATIENT

DRUGS (1)
  1. ADO-TRASTUZUMAB EMTANSINE [Suspect]
     Active Substance: ADO-TRASTUZUMAB EMTANSINE
     Indication: HER2 positive breast cancer
     Dosage: FOR UP TO 14 CYCLES
     Route: 042
     Dates: start: 201905

REACTIONS (15)
  - Pneumonitis [Fatal]
  - Cardiotoxicity [Unknown]
  - Neutropenia [Unknown]
  - Thrombocytopenia [Unknown]
  - Gastrointestinal toxicity [Unknown]
  - Neurotoxicity [Unknown]
  - Hepatotoxicity [Unknown]
  - Fatigue [Unknown]
  - Mucosal inflammation [Unknown]
  - Nausea [Unknown]
  - Anaemia [Unknown]
  - Conjunctivitis [Unknown]
  - Hypersensitivity [Unknown]
  - Pyrexia [Unknown]
  - Ocular toxicity [Unknown]
